FAERS Safety Report 4861398-3 (Version None)
Quarter: 2005Q4

REPORT INFORMATION
  Report Type: 
  Country: None (occurrence: None)
  Receive Date: 20051220
  Receipt Date: 20051028
  Transmission Date: 20060501
  Serious: Yes (Hospitalization)
  Sender: FDA-Public Use
  Company Number: FR-ROCHE-423906

PATIENT
  Age: 54 Year
  Sex: Male
  Weight: 55 kg

DRUGS (5)
  1. CELLCEPT [Suspect]
     Indication: PROPHYLAXIS AGAINST TRANSPLANT REJECTION
     Route: 048
     Dates: start: 20050115
  2. NEORAL [Concomitant]
     Route: 048
     Dates: start: 20050115
  3. ELISOR [Concomitant]
     Dates: start: 20050815
  4. MOPRAL [Concomitant]
     Route: 048
     Dates: start: 20050115
  5. SOLU-MEDROL [Concomitant]
     Route: 048
     Dates: start: 20050115

REACTIONS (2)
  - POLYMORPHONUCLEAR CHROMATIN CLUMPING [None]
  - WHITE BLOOD CELL COUNT DECREASED [None]
